FAERS Safety Report 25533104 (Version 1)
Quarter: 2025Q3

REPORT INFORMATION
  Report Type: Report from Study
  Country: US (occurrence: US)
  Receive Date: 20250709
  Receipt Date: 20250709
  Transmission Date: 20251021
  Serious: Yes (Death, Other)
  Sender: TAKEDA
  Company Number: US-TAKEDA-2025TUS047959

PATIENT
  Sex: Female

DRUGS (8)
  1. FRUQUINTINIB [Suspect]
     Active Substance: FRUQUINTINIB
     Indication: Colon cancer
  2. OXYCODONE [Concomitant]
     Active Substance: OXYCODONE
  3. POTASSIUM CHLORIDE [Concomitant]
     Active Substance: POTASSIUM CHLORIDE
  4. DIPHENHYDRAMINE HYDROCHLORIDE [Concomitant]
     Active Substance: DIPHENHYDRAMINE HYDROCHLORIDE
  5. EPSOM SALT [Concomitant]
     Active Substance: MAGNESIUM SULFATE
  6. Maalox multi symptom [Concomitant]
  7. OMEPRAZOLE [Concomitant]
     Active Substance: OMEPRAZOLE
  8. TYLENOL [Concomitant]
     Active Substance: ACETAMINOPHEN

REACTIONS (7)
  - Death [Fatal]
  - Cough [Recovered/Resolved]
  - Dyspepsia [Not Recovered/Not Resolved]
  - Fatigue [Recovered/Resolved]
  - Pain in extremity [Not Recovered/Not Resolved]
  - Weight decreased [Not Recovered/Not Resolved]
  - Stomatitis [Not Recovered/Not Resolved]
